FAERS Safety Report 9485064 (Version 2)
Quarter: 2013Q3

REPORT INFORMATION
  Report Type: Spontaneous
  Country: US (occurrence: US)
  Receive Date: 20130828
  Receipt Date: 20130828
  Transmission Date: 20140515
  Serious: No
  Sender: FDA-Public Use
  Company Number: US-ABBOTT-13P-163-1104971-00

PATIENT
  Age: 20 Year
  Sex: Male
  Weight: 62.2 kg

DRUGS (2)
  1. ANDROGEL [Suspect]
     Indication: BLOOD TESTOSTERONE DECREASED
     Dosage: FOUR PUMPS DAILY
     Route: 061
     Dates: start: 201302, end: 201303
  2. CITRACAL [Concomitant]
     Indication: PRODUCT USED FOR UNKNOWN INDICATION

REACTIONS (4)
  - Eczema [Recovered/Resolved]
  - Eyelid disorder [Recovered/Resolved]
  - Skin infection [Recovered/Resolved]
  - Eye swelling [Recovered/Resolved]
